FAERS Safety Report 24661325 (Version 3)
Quarter: 2024Q4

REPORT INFORMATION
  Report Type: Spontaneous
  Country: JP (occurrence: JP)
  Receive Date: 20241125
  Receipt Date: 20241230
  Transmission Date: 20250114
  Serious: Yes (Hospitalization)
  Sender: BAUSCH AND LOMB
  Company Number: JP-NORGINE LIMITED-NOR202403213

PATIENT
  Age: 68 Year
  Sex: Female

DRUGS (3)
  1. MOVIPREP [Suspect]
     Active Substance: ASCORBIC ACID\POLYETHYLENE GLYCOL 3350\POTASSIUM CHLORIDE\SODIUM ASCORBATE\SODIUM CHLORIDE\SODIUM SU
     Indication: Bowel preparation
     Dosage: 1.5 L AT 05:00 HOURS, INTAKE OF HALF AMOUNT OF WATER
     Route: 048
     Dates: start: 20221102, end: 20221102
  2. SENNOSIDES [Suspect]
     Active Substance: SENNOSIDES
     Indication: Colonoscopy
     Dosage: 12 MG, BID
     Route: 048
     Dates: start: 20221101, end: 20221101
  3. BISACODYL [Suspect]
     Active Substance: BISACODYL
     Indication: Product used for unknown indication
     Dosage: UNK
     Route: 048
     Dates: start: 20221025, end: 20221102

REACTIONS (3)
  - Intestinal obstruction [Recovered/Resolved]
  - Feeling abnormal [Recovered/Resolved]
  - Abdominal distension [Recovered/Resolved]

NARRATIVE: CASE EVENT DATE: 20221102
